FAERS Safety Report 7952375-4 (Version None)
Quarter: 2011Q4

REPORT INFORMATION
  Report Type: 
  Country: None (occurrence: None)
  Receive Date: 20111201
  Receipt Date: 20111121
  Transmission Date: 20120403
  Serious: Yes (Hospitalization)
  Sender: FDA-Public Use
  Company Number: US-ELI_LILLY_AND_COMPANY-US201110002323

PATIENT
  Sex: Female
  Weight: 62.14 kg

DRUGS (8)
  1. TYLENOL                                 /SCH/ [Concomitant]
  2. SYNTHROID [Concomitant]
  3. SIMVASTATIN [Concomitant]
  4. FORTEO [Suspect]
     Indication: OSTEOPOROSIS
     Dosage: 20 UG, QD
     Route: 058
     Dates: start: 20110901
  5. ANTIHYPERTENSIVES [Concomitant]
  6. FORTEO [Suspect]
     Dosage: 20 UG, QD
     Route: 058
  7. LISINOPRIL [Concomitant]
  8. CALCIUM +VIT D [Concomitant]

REACTIONS (5)
  - RETCHING [None]
  - SCAB [None]
  - HYPERTENSION [None]
  - HERPES ZOSTER [None]
  - PAIN [None]
